FAERS Safety Report 13635180 (Version 1)
Quarter: 2017Q2

REPORT INFORMATION
  Report Type: Spontaneous
  Country: US (occurrence: US)
  Receive Date: 20170531
  Receipt Date: 20170531
  Transmission Date: 20170830
  Serious: No
  Sender: FDA-Public Use
  Company Number: US-ASTELLAS-1693499

PATIENT
  Age: 80 Year
  Sex: Female
  Weight: 55.39 kg

DRUGS (6)
  1. METOPROLOL. [Concomitant]
     Active Substance: METOPROLOL
     Route: 048
  2. ASPIRIN. [Concomitant]
     Active Substance: ASPIRIN
     Route: 048
  3. COUMADIN [Concomitant]
     Active Substance: WARFARIN SODIUM
  4. WARFARIN [Concomitant]
     Active Substance: WARFARIN
     Route: 048
  5. ATORVASTATIN [Concomitant]
     Active Substance: ATORVASTATIN
     Route: 048
  6. TARCEVA [Suspect]
     Active Substance: ERLOTINIB HYDROCHLORIDE
     Indication: LUNG NEOPLASM MALIGNANT
     Route: 048
     Dates: start: 20151218

REACTIONS (10)
  - Mouth ulceration [Unknown]
  - Hair growth abnormal [Unknown]
  - Rash [Unknown]
  - Alopecia [Unknown]
  - Skin lesion [Unknown]
  - Stomatitis [Unknown]
  - Blepharitis [Unknown]
  - Diarrhoea [Unknown]
  - Renal disorder [Unknown]
  - Rash [Unknown]

NARRATIVE: CASE EVENT DATE: 20160112
